FAERS Safety Report 7564640-3 (Version None)
Quarter: 2011Q2

REPORT INFORMATION
  Report Type: 
  Country: None (occurrence: None)
  Receive Date: 20110622
  Receipt Date: 20100816
  Transmission Date: 20111010
  Serious: Yes (Other)
  Sender: FDA-Public Use
  Company Number: US-MYLANLABS-2010S1013454

PATIENT
  Age: 21 Year
  Sex: Male
  Weight: 84.37 kg

DRUGS (2)
  1. DEPAKOTE [Concomitant]
  2. CLOZAPINE [Suspect]
     Indication: SCHIZOPHRENIA
     Route: 048
     Dates: start: 20071201, end: 20100801

REACTIONS (1)
  - GRANULOCYTOPENIA [None]
